FAERS Safety Report 24000489 (Version 1)
Quarter: 2024Q2

REPORT INFORMATION
  Report Type: Report from Study
  Country: KR (occurrence: KR)
  Receive Date: 20240621
  Receipt Date: 20240621
  Transmission Date: 20240716
  Serious: Yes (Hospitalization, Other)
  Sender: FDA-Public Use
  Company Number: KR-BR-2024-0139

PATIENT
  Age: 73 Year
  Sex: Male
  Weight: 68.1 kg

DRUGS (6)
  1. LURBINECTEDIN [Suspect]
     Active Substance: LURBINECTEDIN
     Indication: Small cell lung cancer
     Dosage: 2.26 MILLIGRAM/SQ. METER
     Route: 042
     Dates: start: 20230713, end: 20231006
  2. ALGIN N [Concomitant]
     Indication: Gastrointestinal disorder prophylaxis
     Dosage: 20 MG/ML UNK, Q8H
     Route: 048
     Dates: start: 20230906, end: 20231003
  3. K CAB [Concomitant]
     Indication: Gastrointestinal disorder prophylaxis
     Dosage: 50 MILLIGRAM, QD
     Route: 048
     Dates: start: 20230906, end: 20231003
  4. MACPERAN [METOCLOPRAMIDE] [Concomitant]
     Indication: Prophylaxis of nausea and vomiting
     Dosage: UNK
     Dates: start: 20230713, end: 20230824
  5. YUHAN DEXAMETHASONE DISODIUM PHOSPHATE [Concomitant]
     Indication: Prophylaxis of nausea and vomiting
     Dosage: UNK
     Dates: start: 20230803, end: 20230824
  6. RAMOSETRON HYDROCHLORIDE [Concomitant]
     Active Substance: RAMOSETRON HYDROCHLORIDE
     Indication: Prophylaxis of nausea and vomiting
     Dosage: UNK
     Dates: start: 20230803, end: 20230826

REACTIONS (1)
  - Hepatitis acute [Recovered/Resolved]

NARRATIVE: CASE EVENT DATE: 20230905
